FAERS Safety Report 10305321 (Version 2)
Quarter: 2014Q3

REPORT INFORMATION
  Report Type: Spontaneous
  Country: BR (occurrence: None)
  Receive Date: 20140710
  Receipt Date: 20140716
  Transmission Date: 20150326
  Serious: Yes (Other)
  Sender: FDA-Public Use
  Company Number: 2014BR005575

PATIENT
  Age: 89 Year
  Sex: Male

DRUGS (3)
  1. ZYTIGA (ABIRATERONE ACETATE) [Concomitant]
  2. ELIGARD [Suspect]
     Active Substance: LEUPROLIDE ACETATE
     Indication: PROSTATE CANCER
     Dosage: UNK UNK, Q3MONTHS, SUBCUTANEOUS
     Route: 058
  3. ZOLEDRONIC ACID. [Concomitant]
     Active Substance: ZOLEDRONIC ACID

REACTIONS (1)
  - Drug ineffective [None]
